FAERS Safety Report 18507283 (Version 3)
Quarter: 2020Q4

REPORT INFORMATION
  Report Type: Spontaneous
  Country: PL (occurrence: PL)
  Receive Date: 20201116
  Receipt Date: 20201204
  Transmission Date: 20210114
  Serious: Yes (Hospitalization, Other)
  Sender: FDA-Public Use
  Company Number: PL-MYLANLABS-2020M1093868

PATIENT
  Age: 65 Year
  Sex: Male

DRUGS (5)
  1. CISPLATIN. [Suspect]
     Active Substance: CISPLATIN
     Dosage: 100 MG/M2, 4 SERIES OF INITIAL CHEMOTHERAPY
     Route: 065
  2. FLUOROURACIL. [Suspect]
     Active Substance: FLUOROURACIL
     Indication: NASAL SINUS CANCER
     Dosage: 1000 MG/M2, 4 SERIES OF INITIAL CHEMOTHERAPY
     Route: 065
  3. PACLITAXEL. [Suspect]
     Active Substance: PACLITAXEL
     Indication: NASAL SINUS CANCER
     Dosage: 45 MG/M2, 2 SERIES OF CHEMOTHERAPY
     Route: 065
  4. CARBOPLATIN. [Suspect]
     Active Substance: CARBOPLATIN
     Indication: NASAL SINUS CANCER
     Dosage: (AUC-1.5) ADMINISTERED WEEKLY
     Route: 065
  5. CISPLATIN. [Suspect]
     Active Substance: CISPLATIN
     Indication: NASAL SINUS CANCER
     Dosage: 40 MG/M2, 2 SERIES OF CHEMOTHERAPY
     Route: 065

REACTIONS (6)
  - Mucosal disorder [Unknown]
  - Conductive deafness [Unknown]
  - Product use in unapproved indication [Unknown]
  - Dysphagia [Unknown]
  - Radiation mucositis [Unknown]
  - Off label use [Unknown]
